FAERS Safety Report 18842858 (Version 1)
Quarter: 2021Q1

REPORT INFORMATION
  Report Type: Spontaneous
  Country: GB (occurrence: GB)
  Receive Date: 20210203
  Receipt Date: 20210203
  Transmission Date: 20210419
  Serious: Yes (Other)
  Sender: FDA-Public Use
  Company Number: GB-TEVA-2021-GB-1872688

PATIENT
  Age: 64 Year
  Sex: Female
  Weight: 76 kg

DRUGS (18)
  1. CITALOPRAM [Concomitant]
     Active Substance: CITALOPRAM HYDROBROMIDE
     Dosage: 1 DOSAGE FORMS DAILY; TAKE ONE DAILY
     Dates: start: 20200819
  2. DIAZEPAM. [Concomitant]
     Active Substance: DIAZEPAM
     Dosage: 2 DOSAGE FORMS DAILY; TAKE ONE UP TO TWICE PER DAY
     Dates: start: 20200819
  3. DOXYCYCLINE. [Concomitant]
     Active Substance: DOXYCYCLINE
     Dosage: 2 DOSAGE FORMS DAILY; 1 TWICE DAILY
     Dates: start: 20201217, end: 20201222
  4. SALBUTAMOL [Concomitant]
     Active Substance: ALBUTEROL
     Dosage: INHALE 2 DOSES AS NEEDED
     Dates: start: 20200819
  5. ASPIRIN. [Concomitant]
     Active Substance: ASPIRIN
     Dosage: 1 DOSAGE FORMS DAILY; TAKE ONE DAILY
     Dates: start: 20200819
  6. ZOMORPH [Concomitant]
     Active Substance: MORPHINE SULFATE
     Dosage: 2 DOSAGE FORMS DAILY; TAKE ONE EVERY 12 HRS
     Dates: start: 20200819, end: 20201112
  7. PRAVASTATIN. [Concomitant]
     Active Substance: PRAVASTATIN
     Dosage: 1 DOSAGE FORMS DAILY; TAKE ONE AT NIGHT
     Dates: start: 20200819
  8. ZAPAIN [Concomitant]
     Active Substance: ACETAMINOPHEN\CODEINE PHOSPHATE
     Dosage: TAKE 1 OR 2 FOUR TIMES A DAY
     Dates: start: 20200819
  9. DOXAZOSIN [Suspect]
     Active Substance: DOXAZOSIN MESYLATE
     Dosage: 1 MILLIGRAM DAILY; TAKE ONE DAILY
     Dates: start: 20201204, end: 20201229
  10. INDAPAMIDE. [Concomitant]
     Active Substance: INDAPAMIDE
     Dosage: 1 DOSAGE FORMS DAILY; TAKE ONE EACH MORNING
     Dates: start: 20200819, end: 20201204
  11. AVAMYS [Concomitant]
     Active Substance: FLUTICASONE FUROATE
     Dosage: ONE?TWO PUFFS ONCE A DAY UP EACH NOSTRIL
     Dates: start: 20200819
  12. THEICAL?D3 [Concomitant]
     Dosage: 1 DOSAGE FORMS DAILY; TAKE ONE DAILY
     Dates: start: 20200819
  13. CARBOCISTEINE [Concomitant]
     Active Substance: CARBOCYSTEINE
     Dosage: TAKE TWO CAPSULES IN THE MORNING AND TWO CAPSUL...
     Dates: start: 20200819
  14. TRIMBOW [Concomitant]
     Active Substance: BECLOMETHASONE DIPROPIONATE\FORMOTEROL FUMARATE\GLYCOPYRROLATE
     Dosage: 4 DOSAGE FORMS DAILY; TWO PUFFS TWICE DAILY
     Dates: start: 20200819
  15. LANSOPRAZOLE. [Concomitant]
     Active Substance: LANSOPRAZOLE
     Dosage: 1 DOSAGE FORMS DAILY; TAKE ONE ONCE DAILY
     Dates: start: 20200819
  16. PREDNISOLONE. [Concomitant]
     Active Substance: PREDNISOLONE
     Dosage: 6 DOSAGE FORMS DAILY; SIX TABLETS TO BE TAKEN DAILY WITH FOOD
     Dates: start: 20201217, end: 20201222
  17. NORTRIPTYLINE [Concomitant]
     Active Substance: NORTRIPTYLINE
     Dosage: 50 MILLIGRAM DAILY; 50MG EACH NIGHT
     Dates: start: 20200819, end: 20201112
  18. TEGRETOL [Concomitant]
     Active Substance: CARBAMAZEPINE
     Dosage: 100MG MANE AND 200MG NOCTE
     Dates: start: 20200819

REACTIONS (1)
  - Swelling face [Recovered/Resolved]

NARRATIVE: CASE EVENT DATE: 20210104
